FAERS Safety Report 20538113 (Version 2)
Quarter: 2022Q2

REPORT INFORMATION
  Report Type: Report from Study
  Country: CO (occurrence: CO)
  Receive Date: 20220302
  Receipt Date: 20220531
  Transmission Date: 20220721
  Serious: Yes (Hospitalization, Disabling, Other)
  Sender: FDA-Public Use
  Company Number: CO-ABBVIE-22K-036-4298437-00

PATIENT
  Sex: Male
  Weight: 70 kg

DRUGS (3)
  1. HUMIRA [Suspect]
     Active Substance: ADALIMUMAB
     Indication: Crohn^s disease
     Route: 058
     Dates: start: 20180409
  2. QUETIAPINE [Concomitant]
     Active Substance: QUETIAPINE
     Indication: Dementia Alzheimer^s type
     Dosage: 25 MG MORNING, 150 MG NIGHT
     Route: 048
  3. LORAZEPAM [Concomitant]
     Active Substance: LORAZEPAM
     Indication: Dementia Alzheimer^s type
     Dosage: 1/4 TABLET
     Route: 048

REACTIONS (18)
  - Dementia Alzheimer^s type [Not Recovered/Not Resolved]
  - Disorientation [Not Recovered/Not Resolved]
  - Oxygen saturation decreased [Not Recovered/Not Resolved]
  - Aggression [Recovered/Resolved]
  - Irritability [Recovered/Resolved]
  - COVID-19 [Recovered/Resolved]
  - Hypertension [Recovered/Resolved]
  - Diabetes mellitus [Recovering/Resolving]
  - Walking disability [Not Recovered/Not Resolved]
  - Skin laceration [Not Recovered/Not Resolved]
  - Gastrooesophageal reflux disease [Not Recovered/Not Resolved]
  - Drooling [Not Recovered/Not Resolved]
  - Haematemesis [Recovered/Resolved]
  - Ulcer [Recovered/Resolved]
  - Mobility decreased [Not Recovered/Not Resolved]
  - Hiatus hernia [Not Recovered/Not Resolved]
  - Skin laceration [Not Recovered/Not Resolved]
  - Hiatus hernia [Not Recovered/Not Resolved]

NARRATIVE: CASE EVENT DATE: 20180101
